FAERS Safety Report 10021091 (Version 2)
Quarter: 2014Q1

REPORT INFORMATION
  Report Type: Spontaneous
  Country: US (occurrence: US)
  Receive Date: 20140319
  Receipt Date: 20140328
  Transmission Date: 20141002
  Serious: No
  Sender: FDA-Public Use
  Company Number: US-PFIZER INC-2014077567

PATIENT
  Age: 60 Year
  Sex: Female

DRUGS (12)
  1. GABAPENTIN [Suspect]
  2. ADRENALINE [Suspect]
     Dosage: UNK
  3. TETRACYCLINE HCL [Suspect]
     Dosage: UNK
  4. MACRODANTIN [Suspect]
     Dosage: UNK
  5. LEVAQUIN [Suspect]
     Dosage: UNK
  6. MACROBID [Suspect]
     Dosage: UNK
  7. TALWIN [Suspect]
     Dosage: UNK
  8. IODINE [Suspect]
     Dosage: UNK
  9. PENICILLIN NOS [Suspect]
     Dosage: UNK
  10. OPTISON [Suspect]
     Dosage: UNK
  11. BETIMOL [Suspect]
     Dosage: UNK
     Route: 047
  12. FLUORESCEIN [Suspect]
     Dosage: UNK
     Route: 047

REACTIONS (2)
  - Drug hypersensitivity [Unknown]
  - Bronchospasm [Unknown]
